FAERS Safety Report 4860025-9 (Version None)
Quarter: 2005Q4

REPORT INFORMATION
  Report Type: 
  Country: None (occurrence: None)
  Receive Date: 20051219
  Receipt Date: 20051206
  Transmission Date: 20060501
  Serious: Yes (Hospitalization)
  Sender: FDA-Public Use
  Company Number: VE-ABBOTT-05P-178-0319144-00

PATIENT
  Sex: Female
  Weight: 56 kg

DRUGS (6)
  1. ZEMPLAR [Suspect]
     Indication: HYPERPARATHYROIDISM SECONDARY
     Route: 042
     Dates: start: 20050914, end: 20051201
  2. IRBESARTAN [Concomitant]
     Indication: HYPERTENSION
     Route: 048
  3. NIFEDIPINE [Concomitant]
     Indication: HYPERTENSION
     Route: 048
  4. RILMENIDINE [Concomitant]
     Indication: HYPERTENSION
     Route: 048
  5. BI PREDONIUM [Concomitant]
     Indication: HYPERTENSION
     Route: 048
  6. MULTIVITAMIN [Concomitant]
     Indication: VITAMIN SUPPLEMENTATION
     Route: 042

REACTIONS (3)
  - DYSPNOEA [None]
  - PERICARDIAL EFFUSION [None]
  - PLEURAL EFFUSION [None]
